FAERS Safety Report 10639867 (Version 1)
Quarter: 2014Q4

REPORT INFORMATION
  Report Type: Spontaneous
  Country: US (occurrence: None)
  Receive Date: 20141205
  Receipt Date: 20141205
  Transmission Date: 20150529
  Serious: Yes (Life-Threatening, Hospitalization, Other)
  Sender: FDA-Public Use
  Company Number: None

PATIENT
  Age: 68 Year
  Sex: Female
  Weight: 81.6 kg

DRUGS (21)
  1. BUMETANIDE. [Concomitant]
     Active Substance: BUMETANIDE
  2. DOCUSATE SODIUM. [Concomitant]
     Active Substance: DOCUSATE SODIUM
  3. ACYCLOVIR. [Suspect]
     Active Substance: ACYCLOVIR
     Indication: HERPES ZOSTER
     Route: 048
     Dates: start: 20141128, end: 20141129
  4. ASPIRIN. [Concomitant]
     Active Substance: ASPIRIN
  5. CARVEDILOL. [Concomitant]
     Active Substance: CARVEDILOL
  6. HYDROCODONE/ACETAMINOPHEN [Concomitant]
     Active Substance: ACETAMINOPHEN\HYDROCODONE
  7. LEVEMIR [Concomitant]
     Active Substance: INSULIN DETEMIR
  8. LORAZEPAM. [Concomitant]
     Active Substance: LORAZEPAM
  9. PAROXETINE [Concomitant]
     Active Substance: PAROXETINE\PAROXETINE HYDROCHLORIDE
  10. AMITRIPTYLINE [Concomitant]
     Active Substance: AMITRIPTYLINE
  11. CETIRIZINE [Concomitant]
     Active Substance: CETIRIZINE HYDROCHLORIDE
  12. EZETIMIBE. [Concomitant]
     Active Substance: EZETIMIBE
  13. NEPHROCAPS [Concomitant]
     Active Substance: ASCORBIC ACID\BIOTIN\CYANOCOBALAMIN\FOLIC ACID\NIACIN\PANTOTHENIC ACID\PYRIDOXINE\RIBOFLAVIN\THIAMINE
  14. NOVOLOG SLIDING SCALE [Concomitant]
  15. OMEPRAZOLE. [Concomitant]
     Active Substance: OMEPRAZOLE
  16. SIMVASTATIN. [Concomitant]
     Active Substance: SIMVASTATIN
  17. LOSARTAN [Concomitant]
     Active Substance: LOSARTAN
  18. ACYCLOVIR. [Concomitant]
     Active Substance: ACYCLOVIR
  19. LEVOTHYROXINE [Concomitant]
     Active Substance: LEVOTHYROXINE
  20. ONDANSETRON [Concomitant]
     Active Substance: ONDANSETRON
  21. CALCIUM ACETATE. [Concomitant]
     Active Substance: CALCIUM ACETATE

REACTIONS (8)
  - Confusional state [None]
  - Blood pressure increased [None]
  - Delusion [None]
  - Anxiety [None]
  - Muscle twitching [None]
  - Nausea [None]
  - Hallucination [None]
  - Neurotoxicity [None]

NARRATIVE: CASE EVENT DATE: 20141201
